FAERS Safety Report 9095807 (Version 1)
Quarter: 2013Q1

REPORT INFORMATION
  Report Type: Report from Study
  Country: DE (occurrence: DE)
  Receive Date: 20130219
  Receipt Date: 20130219
  Transmission Date: 20140127
  Serious: Yes (Hospitalization)
  Sender: FDA-Public Use
  Company Number: DE-ABBOTT-13P-062-1050500-00

PATIENT
  Sex: Male

DRUGS (1)
  1. HUMIRA PEN [Suspect]
     Indication: CROHN^S DISEASE
     Route: 058
     Dates: start: 20111201, end: 20121201

REACTIONS (3)
  - Gastrointestinal stenosis [Recovering/Resolving]
  - Gastrointestinal fistula [Recovering/Resolving]
  - Drug ineffective [Recovering/Resolving]
